FAERS Safety Report 17620061 (Version 2)
Quarter: 2020Q2

REPORT INFORMATION
  Report Type: Spontaneous
  Country: AU (occurrence: AU)
  Receive Date: 20200403
  Receipt Date: 20200424
  Transmission Date: 20200713
  Serious: Yes (Other)
  Sender: FDA-Public Use
  Company Number: AU-SPECGX-T202000660

PATIENT
  Sex: Female
  Weight: 44 kg

DRUGS (1)
  1. EXALGO [Suspect]
     Active Substance: HYDROMORPHONE HYDROCHLORIDE
     Indication: BACK PAIN
     Dosage: UNK, (16 MG)
     Route: 065

REACTIONS (6)
  - Tremor [Unknown]
  - Agitation [Unknown]
  - Vomiting [Unknown]
  - Delirium [Unknown]
  - Accidental overdose [Unknown]
  - Body temperature increased [Unknown]

NARRATIVE: CASE EVENT DATE: 20190703
